FAERS Safety Report 17654973 (Version 1)
Quarter: 2020Q2

REPORT INFORMATION
  Report Type: Spontaneous
  Country: US (occurrence: US)
  Receive Date: 20200410
  Receipt Date: 20200410
  Transmission Date: 20200713
  Serious: Yes (Life-Threatening, Hospitalization, Other)
  Sender: FDA-Public Use
  Company Number: US-DRREDDYS-USA/USA/20/0121843

PATIENT
  Age: 55 Year
  Sex: Male

DRUGS (1)
  1. IBUPROFEN. [Suspect]
     Active Substance: IBUPROFEN
     Indication: MYALGIA
     Route: 065

REACTIONS (7)
  - Chronic gastrointestinal bleeding [Unknown]
  - Gastric ulcer [Unknown]
  - Fall [Unknown]
  - Anaemia [Recovering/Resolving]
  - Melaena [Recovered/Resolved]
  - Blood lactic acid increased [Recovered/Resolved]
  - Syncope [Unknown]
